FAERS Safety Report 11292941 (Version 2)
Quarter: 2015Q3

REPORT INFORMATION
  Report Type: Report from Study
  Country: CH (occurrence: CH)
  Receive Date: 20150722
  Receipt Date: 20150828
  Transmission Date: 20151125
  Serious: Yes (Hospitalization, Other)
  Sender: FDA-Public Use
  Company Number: CH-AMGEN-CHECT2015070870

PATIENT
  Age: 53 Year
  Sex: Female

DRUGS (1)
  1. DENOSUMAB [Suspect]
     Active Substance: DENOSUMAB
     Indication: PRODUCT USED FOR UNKNOWN INDICATION
     Dosage: UNK
     Route: 065

REACTIONS (5)
  - Metastases to liver [Recovering/Resolving]
  - Disease progression [Unknown]
  - Nasopharyngitis [Unknown]
  - Cardiac tamponade [Recovered/Resolved]
  - Pericardial effusion malignant [Recovering/Resolving]

NARRATIVE: CASE EVENT DATE: 201501
